FAERS Safety Report 23580599 (Version 1)
Quarter: 2024Q1

REPORT INFORMATION
  Report Type: Spontaneous
  Country: US (occurrence: US)
  Receive Date: 20240229
  Receipt Date: 20240229
  Transmission Date: 20240410
  Serious: No
  Sender: FDA-Public Use
  Company Number: US-RECORDATI RARE DISEASE INC.-2023002886

PATIENT

DRUGS (2)
  1. BETAINE [Suspect]
     Active Substance: BETAINE
     Indication: Cystathionine beta-synthase deficiency
  2. ENOXAPARIN [Suspect]
     Active Substance: ENOXAPARIN
     Indication: Product used for unknown indication

REACTIONS (3)
  - Postpartum haemorrhage [Unknown]
  - Hepatic enzyme increased [Unknown]
  - Maternal exposure during pregnancy [Recovered/Resolved]
